FAERS Safety Report 5239973-6 (Version None)
Quarter: 2007Q1

REPORT INFORMATION
  Report Type: 
  Country: None (occurrence: None)
  Receive Date: 20070216
  Receipt Date: 20070209
  Transmission Date: 20070707
  Serious: Yes (Other)
  Sender: FDA-Public Use
  Company Number: US-PFIZER INC-2006144727

PATIENT
  Sex: Male
  Weight: 101.6 kg

DRUGS (17)
  1. ZOLOFT [Suspect]
     Indication: ANXIETY
  2. ZOLOFT [Suspect]
     Indication: DEPRESSION
  3. SERTRALINE [Suspect]
     Indication: ANXIETY
  4. SERTRALINE [Suspect]
     Indication: DEPRESSION
  5. ANAPRIL [Concomitant]
  6. TAMSULOSIN HCL [Concomitant]
  7. HYDROCHLOROTHIAZIDE [Concomitant]
  8. LASIX [Concomitant]
  9. NORVASC [Concomitant]
  10. PHOSLO [Concomitant]
  11. REGLAN [Concomitant]
  12. TUMS [Concomitant]
  13. ZYRTEC [Concomitant]
  14. CEPHALEXIN [Concomitant]
  15. CIALIS [Concomitant]
  16. AMBIEN [Concomitant]
  17. EPOETIN [Concomitant]

REACTIONS (5)
  - ANXIETY [None]
  - BLOOD CALCIUM DECREASED [None]
  - BLOOD CREATININE ABNORMAL [None]
  - DRUG INEFFECTIVE [None]
  - HYPERKALAEMIA [None]
